FAERS Safety Report 13542141 (Version 8)
Quarter: 2022Q4

REPORT INFORMATION
  Report Type: Spontaneous
  Country: CA (occurrence: CA)
  Receive Date: 20170512
  Receipt Date: 20221031
  Transmission Date: 20230113
  Serious: Yes (Death, Life-Threatening, Hospitalization, Other)
  Sender: FDA-Public Use
  Company Number: CA-MLMSERVICE-20170503-0711002-1

PATIENT
  Age: 71 Year
  Sex: Female

DRUGS (11)
  1. BUPROPION [Suspect]
     Active Substance: BUPROPION
     Indication: Product used for unknown indication
     Route: 048
  2. LORAZEPAM [Suspect]
     Active Substance: LORAZEPAM
     Indication: Product used for unknown indication
     Dosage: NOT SPECIFIED
     Route: 048
  3. ROSUVASTATIN CALCIUM [Suspect]
     Active Substance: ROSUVASTATIN CALCIUM
     Indication: Product used for unknown indication
     Dosage: NOT SPECIFIED
     Route: 048
  4. LEVOTHYROXINE SODIUM [Suspect]
     Active Substance: LEVOTHYROXINE SODIUM
     Indication: Product used for unknown indication
     Dosage: MODIFIED RELEASE  (NOT SPECIFIED)
     Route: 048
  5. AMITRIPTYLINE PAMOATE [Suspect]
     Active Substance: AMITRIPTYLINE PAMOATE
     Indication: Product used for unknown indication
     Route: 048
  6. PANTOPRAZOLE SODIUM [Suspect]
     Active Substance: PANTOPRAZOLE SODIUM
     Indication: Product used for unknown indication
     Dosage: MODIFIED RELEASE  NOT SPECIFIED
     Route: 048
  7. PROPRANOLOL HYDROCHLORIDE [Suspect]
     Active Substance: PROPRANOLOL HYDROCHLORIDE
     Indication: Product used for unknown indication
     Dosage: MODIFIED RELEASE 9NOT SPECIFIED)
     Route: 048
  8. CITALOPRAM HYDROBROMIDE [Suspect]
     Active Substance: CITALOPRAM HYDROBROMIDE
     Indication: Product used for unknown indication
     Dosage: MODIFIED RELEASE
     Route: 048
  9. OXYCODONE [Suspect]
     Active Substance: OXYCODONE
     Indication: Product used for unknown indication
     Dosage: MODIFIED RELEASE
     Route: 048
  10. TOVIAZ [Suspect]
     Active Substance: FESOTERODINE FUMARATE
     Indication: Product used for unknown indication
     Route: 048
  11. FESOTERODINE FUMARATE [Suspect]
     Active Substance: FESOTERODINE FUMARATE
     Indication: Product used for unknown indication
     Route: 048

REACTIONS (8)
  - Brain injury [Fatal]
  - Pulseless electrical activity [Fatal]
  - Electrocardiogram QRS complex prolonged [Unknown]
  - Cardiac arrest [Fatal]
  - Loss of consciousness [Fatal]
  - Bradycardia [Fatal]
  - Hypotension [Fatal]
  - Overdose [Fatal]
